FAERS Safety Report 21227896 (Version 1)
Quarter: 2022Q3

REPORT INFORMATION
  Report Type: Spontaneous
  Country: US (occurrence: None)
  Receive Date: 20220817
  Receipt Date: 20220817
  Transmission Date: 20221027
  Serious: No
  Sender: FDA-Public Use
  Company Number: None

PATIENT
  Sex: Male
  Weight: 79.38 kg

DRUGS (14)
  1. LENALIDOMIDE [Suspect]
     Active Substance: LENALIDOMIDE
     Indication: Plasma cell myeloma
     Dosage: OTHER FREQUENCY : 21D - 7 DAYS OFF;?
     Route: 048
  2. ASPIRIN [Concomitant]
     Active Substance: ASPIRIN
  3. BACTRIM DS [Concomitant]
     Active Substance: SULFAMETHOXAZOLE\TRIMETHOPRIM
  4. CALCIUM [Concomitant]
     Active Substance: CALCIUM
  5. CALCIUM\VITAMIN D [Concomitant]
     Active Substance: CALCIUM\VITAMIN D
  6. Condamycin [Concomitant]
  7. CYCLOBENZAPRINE [Concomitant]
     Active Substance: CYCLOBENZAPRINE
  8. DOCUSATE [Concomitant]
     Active Substance: DOCUSATE
  9. NINLARO [Concomitant]
     Active Substance: IXAZOMIB CITRATE
  10. OMEPRAZOLE [Concomitant]
     Active Substance: OMEPRAZOLE
  11. ONDANSETRON [Concomitant]
     Active Substance: ONDANSETRON
  12. TYLENOL [Concomitant]
     Active Substance: ACETAMINOPHEN
  13. VALTREX [Concomitant]
     Active Substance: VALACYCLOVIR HYDROCHLORIDE
  14. VITAMIN D3 [Concomitant]
     Active Substance: CHOLECALCIFEROL

REACTIONS (1)
  - Disease progression [None]
